FAERS Safety Report 7026463-3 (Version None)
Quarter: 2010Q4

REPORT INFORMATION
  Report Type: 
  Country: None (occurrence: None)
  Receive Date: 20101004
  Receipt Date: 20100921
  Transmission Date: 20110411
  Serious: Yes (Hospitalization)
  Sender: FDA-Public Use
  Company Number: MX-ELI_LILLY_AND_COMPANY-MX201009006371

PATIENT
  Age: 31 Year
  Sex: Male
  Weight: 100 kg

DRUGS (3)
  1. ZYPREXA [Suspect]
     Indication: BIPOLAR DISORDER
     Dosage: 5 MG, DAILY (1/D)
     Route: 065
     Dates: start: 20030101, end: 20100326
  2. ZYPREXA [Suspect]
     Dosage: 10 MG, DAILY (1/D)
     Route: 065
     Dates: start: 20100611
  3. CARBOLIT [Concomitant]
     Indication: BIPOLAR DISORDER
     Dosage: 5 MG, 2/D
     Route: 065

REACTIONS (4)
  - BIPOLAR DISORDER [None]
  - HALLUCINATION, AUDITORY [None]
  - HUNGER [None]
  - WEIGHT INCREASED [None]
